FAERS Safety Report 9933840 (Version 2)
Quarter: 2014Q1

REPORT INFORMATION
  Report Type: Report from Study
  Country: US (occurrence: US)
  Receive Date: 20140228
  Receipt Date: 20140228
  Transmission Date: 20141002
  Serious: No
  Sender: FDA-Public Use
  Company Number: US-MYLANLABS-2013S1016237

PATIENT
  Sex: Male
  Weight: 74.84 kg

DRUGS (3)
  1. AMNESTEEM CAPSULES [Suspect]
     Indication: ACNE
     Dates: start: 20130306, end: 20130628
  2. AMNESTEEM CAPSULES [Suspect]
     Indication: ACNE
     Dates: start: 20130306, end: 20130628
  3. AMNESTEEM CAPSULES [Suspect]
     Indication: ACNE
     Dates: start: 20130306, end: 20130628

REACTIONS (2)
  - Anxiety [Not Recovered/Not Resolved]
  - Mood altered [Not Recovered/Not Resolved]
